FAERS Safety Report 26051766 (Version 1)
Quarter: 2025Q4

REPORT INFORMATION
  Report Type: Spontaneous
  Country: EU (occurrence: EU)
  Receive Date: 20251117
  Receipt Date: 20251117
  Transmission Date: 20260117
  Serious: Yes (Other)
  Sender: OCTAPHARMA
  Company Number: EU-DE-TR20240703

PATIENT
  Age: 66 Year
  Sex: Female

DRUGS (2)
  1. OCTAPLAS [Suspect]
     Active Substance: PLASMA PROTEIN FRACTION (HUMAN)
     Indication: Surgery
     Dates: start: 20240703
  2. OCTAPLAS [Suspect]
     Active Substance: PLASMA PROTEIN FRACTION (HUMAN)
     Dates: start: 20240703

REACTIONS (3)
  - Blood pressure decreased [Recovered/Resolved]
  - Heart rate increased [Recovered/Resolved]
  - Shock [Recovered/Resolved]

NARRATIVE: CASE EVENT DATE: 20240703
